FAERS Safety Report 23280378 (Version 1)
Quarter: 2023Q4

REPORT INFORMATION
  Report Type: Report from Study
  Country: US (occurrence: US)
  Receive Date: 20231211
  Receipt Date: 20231211
  Transmission Date: 20240110
  Serious: Yes (Other)
  Sender: FDA-Public Use
  Company Number: US-JNJFOC-20231215879

PATIENT

DRUGS (2)
  1. AMIVANTAMAB [Suspect]
     Active Substance: AMIVANTAMAB
     Indication: Non-small cell lung cancer
     Route: 065
  2. OSIMERTINIB [Suspect]
     Active Substance: OSIMERTINIB
     Indication: Non-small cell lung cancer
     Route: 065

REACTIONS (13)
  - Thrombocytopenia [Unknown]
  - Neutropenia [Unknown]
  - Pneumonitis [Unknown]
  - Infusion related reaction [Unknown]
  - Rash [Unknown]
  - Skin ulcer [Unknown]
  - Hypertransaminasaemia [Unknown]
  - Paronychia [Unknown]
  - Fatigue [Unknown]
  - Oedema [Unknown]
  - Nausea [Unknown]
  - Diarrhoea [Unknown]
  - Mucosal inflammation [Unknown]
